FAERS Safety Report 22336051 (Version 1)
Quarter: 2023Q2

REPORT INFORMATION
  Report Type: Spontaneous
  Country: US (occurrence: US)
  Receive Date: 20230518
  Receipt Date: 20230518
  Transmission Date: 20230721
  Serious: No
  Sender: FDA-Public Use
  Company Number: US-GLENMARK PHARMACEUTICALS-2022GMK076176

PATIENT

DRUGS (2)
  1. TOPIRAMATE [Suspect]
     Active Substance: TOPIRAMATE
     Indication: Migraine
     Dosage: 50 MILLIGRAM, BID
     Route: 048
     Dates: start: 202209
  2. TOPIRAMATE [Suspect]
     Active Substance: TOPIRAMATE
     Indication: Cerebral disorder
     Dosage: 50 MILLIGRAM, OD
     Route: 048
     Dates: start: 2022

REACTIONS (3)
  - Dehydration [Unknown]
  - Diarrhoea [Unknown]
  - Weight decreased [Unknown]

NARRATIVE: CASE EVENT DATE: 20220101
